FAERS Safety Report 15396296 (Version 1)
Quarter: 2018Q3

REPORT INFORMATION
  Report Type: Spontaneous
  Country: US (occurrence: US)
  Receive Date: 20180912
  Receipt Date: 20180912
  Transmission Date: 20181010
  Serious: No
  Sender: FDA-Public Use
  Company Number: None

PATIENT
  Age: 59 Year
  Sex: Female
  Weight: 58.97 kg

DRUGS (1)
  1. COSOPT [Suspect]
     Active Substance: DORZOLAMIDE HYDROCHLORIDE\TIMOLOL MALEATE
     Indication: OPEN ANGLE GLAUCOMA
     Dosage: ONE DROP IN BOTH EYES BID TOPICAL/OPHTHALMIC
     Route: 047
     Dates: start: 20110106, end: 20121227

REACTIONS (1)
  - Treatment failure [None]

NARRATIVE: CASE EVENT DATE: 20121227
